FAERS Safety Report 8645990 (Version 7)
Quarter: 2014Q1

REPORT INFORMATION
  Report Type: Spontaneous
  Country: US (occurrence: US)
  Receive Date: 20120702
  Receipt Date: 20140207
  Transmission Date: 20141002
  Serious: Yes (Hospitalization, Disabling, Other)
  Sender: FDA-Public Use
  Company Number: US-009507513-1206USA04694

PATIENT
  Sex: Female

DRUGS (2)
  1. FOSAMAX [Suspect]
     Indication: OSTEOPENIA
     Dosage: 70 MG, UNK
     Route: 048
     Dates: start: 200108, end: 20100314
  2. FOSAMAX [Suspect]
     Indication: OSTEOPOROSIS

REACTIONS (22)
  - Femur fracture [Recovering/Resolving]
  - Open reduction of fracture [Unknown]
  - Breast cancer female [Unknown]
  - Mastectomy [Unknown]
  - Femur fracture [Unknown]
  - Salpingo-oophorectomy unilateral [Unknown]
  - Malignant breast lump removal [Unknown]
  - Osteoporosis [Unknown]
  - Stress fracture [Unknown]
  - Bone density decreased [Unknown]
  - Meniscus removal [Unknown]
  - Femur fracture [Unknown]
  - Adverse event [Unknown]
  - Meniscus injury [Unknown]
  - Intervertebral disc protrusion [Unknown]
  - Intervertebral disc protrusion [Unknown]
  - Haemangioma of bone [Unknown]
  - Ovarian cyst [Unknown]
  - Osteoarthritis [Unknown]
  - Hysterectomy [Unknown]
  - Bone pain [Unknown]
  - Arthralgia [Unknown]
